FAERS Safety Report 8552423-7 (Version None)
Quarter: 2012Q3

REPORT INFORMATION
  Report Type: 
  Country: None (occurrence: None)
  Receive Date: 20120731
  Receipt Date: 20120723
  Transmission Date: 20120928
  Serious: Yes (Other)
  Sender: FDA-Public Use
  Company Number: US-JNJFOC-20120711551

PATIENT
  Sex: Female

DRUGS (1)
  1. STELARA [Suspect]
     Indication: PSORIASIS
     Dosage: CANCELLED FEB (DATE AND YEAR UNSPECIFIED) DOSE
     Route: 058
     Dates: start: 20120101, end: 20120101

REACTIONS (2)
  - BRONCHITIS [None]
  - INFECTION [None]
